FAERS Safety Report 5005296-3 (Version None)
Quarter: 2006Q2

REPORT INFORMATION
  Report Type: 
  Country: None (occurrence: None)
  Receive Date: 20060518
  Receipt Date: 20060427
  Transmission Date: 20061013
  Serious: Yes (Death)
  Sender: FDA-Public Use
  Company Number: JP-JPN-A200601414

PATIENT
  Age: 34 Year
  Sex: Female

DRUGS (5)
  1. PAXIL [Suspect]
     Indication: DEPRESSION
     Route: 048
  2. PAXIL [Suspect]
     Dosage: 20MG TWICE PER DAY
     Route: 048
     Dates: start: 20060418
  3. DEPAS [Concomitant]
     Dosage: 1MG PER DAY
     Route: 048
     Dates: start: 20060418
  4. LULLAN [Concomitant]
     Dosage: 4MG FOUR TIMES PER DAY
     Route: 065
     Dates: start: 20060418
  5. ROHYPNOL [Concomitant]
     Dosage: 2MG PER DAY
     Route: 065
     Dates: start: 20060418

REACTIONS (2)
  - COMPLETED SUICIDE [None]
  - INTENTIONAL OVERDOSE [None]
